FAERS Safety Report 9093992 (Version 1)
Quarter: 2013Q1

REPORT INFORMATION
  Report Type: Spontaneous
  Country: US (occurrence: None)
  Receive Date: 20130122
  Receipt Date: 20130122
  Transmission Date: 20140127
  Serious: No
  Sender: FDA-Public Use
  Company Number: 2013-00019

PATIENT
  Age: 86 Year
  Sex: Male
  Weight: 72.58 kg

DRUGS (10)
  1. ZICAM [Suspect]
     Indication: NASOPHARYNGITIS
     Dosage: EVERY 3 TO 6 HRS
     Route: 048
     Dates: start: 20130110, end: 20130113
  2. ZICAM [Suspect]
     Indication: NASOPHARYNGITIS
     Dosage: EVERY 3 TO 6 HRS
     Route: 048
     Dates: start: 20130110, end: 20130113
  3. OMEPRAZOLE [Concomitant]
  4. LEVOTHYROXINE [Concomitant]
  5. AMLODIPINE [Concomitant]
  6. ATORVASTATIN [Concomitant]
  7. NADOLOL [Concomitant]
  8. PROPAFENONE [Concomitant]
  9. FLUTICASONE [Concomitant]
  10. ZETONNA [Concomitant]

REACTIONS (1)
  - Ageusia [None]
